FAERS Safety Report 23177539 (Version 2)
Quarter: 2023Q4

REPORT INFORMATION
  Report Type: Spontaneous
  Country: PT (occurrence: PT)
  Receive Date: 20231113
  Receipt Date: 20231116
  Transmission Date: 20240109
  Serious: Yes (Hospitalization, Other)
  Sender: FDA-Public Use
  Company Number: PT-ABBVIE-5451338

PATIENT
  Age: 47 Year
  Sex: Male

DRUGS (2)
  1. ADALIMUMAB [Suspect]
     Active Substance: ADALIMUMAB\ISOPROPYL ALCOHOL
     Indication: Crohn^s disease
     Dosage: 40 MILLIGRAM, BIWEEKLY
     Route: 058
  2. METHOTREXATE [Suspect]
     Active Substance: METHOTREXATE
     Indication: Crohn^s disease
     Dosage: 10 MILLIGRAM, QW
     Route: 065

REACTIONS (4)
  - Immunosuppression [Recovering/Resolving]
  - Visceral leishmaniasis [Recovering/Resolving]
  - Cutaneous leishmaniasis [Unknown]
  - Nasal congestion [Unknown]
